FAERS Safety Report 23950430 (Version 1)
Quarter: 2024Q2

REPORT INFORMATION
  Report Type: Spontaneous
  Country: US (occurrence: None)
  Receive Date: 20240606
  Receipt Date: 20240606
  Transmission Date: 20240715
  Serious: Yes (Other)
  Sender: FDA-Public Use
  Company Number: None

PATIENT
  Age: 61 Year
  Sex: Male

DRUGS (1)
  1. XDEMVY [Suspect]
     Active Substance: LOTILANER
     Indication: Demodex blepharitis
     Dosage: 1 DROP(S) -GTT BID OPHTHALMIC
     Route: 047
     Dates: start: 20240524, end: 20240524

REACTIONS (2)
  - Hypoaesthesia eye [None]
  - Ocular discomfort [None]

NARRATIVE: CASE EVENT DATE: 20240524
